FAERS Safety Report 9720660 (Version 3)
Quarter: 2014Q1

REPORT INFORMATION
  Report Type: Spontaneous
  Country: JP (occurrence: JP)
  Receive Date: 20131129
  Receipt Date: 20140116
  Transmission Date: 20141002
  Serious: Yes (Death, Other)
  Sender: FDA-Public Use
  Company Number: PHHY2013JP137169

PATIENT
  Age: 29 Year
  Sex: Female

DRUGS (2)
  1. ZOMETA [Suspect]
     Indication: METASTASES TO BONE
     Route: 041
  2. NAVELBINE [Suspect]

REACTIONS (7)
  - Portal vein thrombosis [Fatal]
  - Vascular pain [Fatal]
  - General physical health deterioration [Fatal]
  - Metastases to bone [Fatal]
  - Metastases to liver [Fatal]
  - Malignant neoplasm progression [Fatal]
  - Hepatic lesion [Not Recovered/Not Resolved]
